FAERS Safety Report 13033980 (Version 1)
Quarter: 2016Q4

REPORT INFORMATION
  Report Type: Report from Study
  Country: TR (occurrence: TR)
  Receive Date: 20161216
  Receipt Date: 20161216
  Transmission Date: 20170207
  Serious: Yes (Death)
  Sender: FDA-Public Use
  Company Number: TR-ROCHE-1868083

PATIENT
  Age: 53 Year
  Sex: Female

DRUGS (2)
  1. ALTEPLASE [Suspect]
     Active Substance: ALTEPLASE
     Dosage: 10MG BOLUS FOLLOWED BY A 90MG BOLUS PER CONTINUOUS INFUSION OF MORE THAN 2 HOURS VIA CENTRAL LINE
     Route: 042
  2. ALTEPLASE [Suspect]
     Active Substance: ALTEPLASE
     Indication: PULMONARY EMBOLISM
     Dosage: 10MG BOLUS FOLLOWED BY A 90MG BOLUS PER CONTINUOUS INFUSION OF MORE THAN 2 HOURS VIA CENTRAL LINE
     Route: 040

REACTIONS (1)
  - Cardio-respiratory arrest [Fatal]
